FAERS Safety Report 5883858-9 (Version None)
Quarter: 2008Q3

REPORT INFORMATION
  Report Type: 
  Country: None (occurrence: None)
  Receive Date: 20080915
  Receipt Date: 20080904
  Transmission Date: 20090109
  Serious: Yes (Hospitalization)
  Sender: FDA-Public Use
  Company Number: A0747334A

PATIENT
  Age: 68 Year
  Sex: Female
  Weight: 83.6 kg

DRUGS (1)
  1. AVANDIA [Suspect]
     Dosage: 4MG TWICE PER DAY
     Dates: start: 20040101, end: 20060101

REACTIONS (9)
  - ASTHENIA [None]
  - CARDIAC DISORDER [None]
  - CARDIAC FAILURE [None]
  - DYSPNOEA [None]
  - HYPOAESTHESIA [None]
  - ILL-DEFINED DISORDER [None]
  - MYOCARDIAL INFARCTION [None]
  - STRESS [None]
  - TRANSIENT ISCHAEMIC ATTACK [None]
